FAERS Safety Report 18115533 (Version 2)
Quarter: 2021Q2

REPORT INFORMATION
  Report Type: Spontaneous
  Country: US (occurrence: US)
  Receive Date: 20200805
  Receipt Date: 20210629
  Transmission Date: 20210717
  Serious: No
  Sender: FDA-Public Use
  Company Number: US-TEVA-2020-US-1809994

PATIENT
  Age: 66 Year
  Sex: Female

DRUGS (1)
  1. GABAPENTIN. [Suspect]
     Active Substance: GABAPENTIN
     Indication: NEUROPATHY PERIPHERAL
     Dosage: 200 MILLIGRAM DAILY; 100MG IN THE MORNING AND 100MG IN EVENING BY MOUTH
     Route: 048

REACTIONS (3)
  - Memory impairment [Unknown]
  - Eye pain [Unknown]
  - Somnolence [Unknown]
